FAERS Safety Report 15220984 (Version 2)
Quarter: 2020Q1

REPORT INFORMATION
  Report Type: Spontaneous
  Country: US (occurrence: US)
  Receive Date: 20180731
  Receipt Date: 20200117
  Transmission Date: 20200409
  Serious: Yes (Other)
  Sender: FDA-Public Use
  Company Number: US-PFIZER INC-2018307258

PATIENT
  Age: 64 Year
  Sex: Male
  Weight: 107.9 kg

DRUGS (13)
  1. LYRICA [Suspect]
     Active Substance: PREGABALIN
     Indication: NEUROPATHY PERIPHERAL
     Dosage: 150 MG, 2X/DAY
     Route: 048
     Dates: end: 20180630
  2. PREVACID [Concomitant]
     Active Substance: LANSOPRAZOLE
     Indication: ABDOMINAL DISCOMFORT
     Dosage: 30 MG, 2X/DAY
     Route: 048
  3. MORPHINE [Concomitant]
     Active Substance: MORPHINE
     Indication: PAIN
     Dosage: 30 MG, 3X/DAY
     Route: 048
  4. OXYCODONE IR [Suspect]
     Active Substance: OXYCODONE
     Indication: PAIN
     Dosage: 360 MG, DAILY [12 PILLS PER DAY]
     Route: 048
  5. LYRICA [Suspect]
     Active Substance: PREGABALIN
     Indication: LIMB DISCOMFORT
  6. LISINOPRIL. [Concomitant]
     Active Substance: LISINOPRIL
     Indication: BLOOD PRESSURE ABNORMAL
     Dosage: 20 MG, 1X/DAY
  7. AMITRIPTYLINE [Concomitant]
     Active Substance: AMITRIPTYLINE
     Indication: SLEEP DISORDER
     Dosage: 25 MG, 1X/DAY [1 TIME DAILY AT BEDTIME]
     Route: 048
  8. OXYCODONE IR [Suspect]
     Active Substance: OXYCODONE
     Dosage: 120 MG, DAILY [4 PILLS PER DAY]
     Route: 048
  9. PAROXETINE. [Concomitant]
     Active Substance: PAROXETINE
     Indication: DEPRESSION
     Dosage: 40 MG, 1X/DAY
     Route: 048
  10. LEVOTHYROXINE. [Concomitant]
     Active Substance: LEVOTHYROXINE
     Indication: THYROID DISORDER
     Dosage: 50 UG, 1X/DAY
     Route: 048
  11. CELEBREX [Concomitant]
     Active Substance: CELECOXIB
     Dosage: 200 MG, 1X/DAY
     Route: 048
  12. AMITRIPTYLINE [Concomitant]
     Active Substance: AMITRIPTYLINE
     Indication: PAIN
  13. WARFARIN [Concomitant]
     Active Substance: WARFARIN
     Indication: ANTICOAGULANT THERAPY
     Dosage: 7.5 MG, 1X/DAY
     Route: 048

REACTIONS (6)
  - Poor quality sleep [Unknown]
  - Rash papular [Unknown]
  - Spinal cord compression [Unknown]
  - Withdrawal syndrome [Unknown]
  - Pain [Unknown]
  - Somnolence [Unknown]
